FAERS Safety Report 14985408 (Version 1)
Quarter: 2018Q2

REPORT INFORMATION
  Report Type: Spontaneous
  Country: GB (occurrence: GB)
  Receive Date: 20180607
  Receipt Date: 20180607
  Transmission Date: 20180711
  Serious: Yes (Other)
  Sender: FDA-Public Use
  Company Number: GB-TEVA-2018-GB-902899

PATIENT
  Age: 65 Year
  Sex: Male
  Weight: 107 kg

DRUGS (9)
  1. VITAMIN D [Concomitant]
     Active Substance: CHOLECALCIFEROL
  2. ACETYLSALICYLIC ACID [Concomitant]
     Active Substance: ASPIRIN
  3. FUROSEMIDE. [Suspect]
     Active Substance: FUROSEMIDE
     Indication: OEDEMA
     Route: 048
     Dates: start: 201707
  4. TRAMADOL. [Concomitant]
     Active Substance: TRAMADOL
  5. MEBEVERINE [Concomitant]
     Active Substance: MEBEVERINE
  6. IBUPROFEN. [Concomitant]
     Active Substance: IBUPROFEN
  7. COLOFAC [Concomitant]
     Active Substance: MEBEVERINE HYDROCHLORIDE
  8. NOVORAPID [Concomitant]
     Active Substance: INSULIN ASPART
  9. INSULIN GLARGINE [Concomitant]
     Active Substance: INSULIN GLARGINE

REACTIONS (9)
  - Oedema peripheral [Not Recovered/Not Resolved]
  - Osteoarthritis [Unknown]
  - Insomnia [Unknown]
  - Dysphagia [Unknown]
  - Oropharyngeal pain [Unknown]
  - Skin haemorrhage [Unknown]
  - Nausea [Unknown]
  - Pruritus [Not Recovered/Not Resolved]
  - Rheumatoid arthritis [Unknown]
